FAERS Safety Report 23350819 (Version 1)
Quarter: 2023Q4

REPORT INFORMATION
  Report Type: Spontaneous
  Country: US (occurrence: US)
  Receive Date: 20231229
  Receipt Date: 20231229
  Transmission Date: 20240110
  Serious: Yes (Hospitalization)
  Sender: FDA-Public Use
  Company Number: US-MYLANLABS-2023M1138713

PATIENT
  Age: 61 Year
  Sex: Male

DRUGS (1)
  1. SULFAMETHOXAZOLE\TRIMETHOPRIM [Suspect]
     Active Substance: SULFAMETHOXAZOLE\TRIMETHOPRIM
     Indication: Wound infection
     Dosage: UNK UNK, BID, 7 DAY COURSE, DOUBLE STRENGTH
     Route: 065

REACTIONS (2)
  - Type IV hypersensitivity reaction [Recovered/Resolved]
  - Multiple organ dysfunction syndrome [Recovered/Resolved]
